FAERS Safety Report 6569432-X (Version None)
Quarter: 2010Q1

REPORT INFORMATION
  Report Type: 
  Country: None (occurrence: None)
  Receive Date: 20100202
  Receipt Date: 20100202
  Transmission Date: 20100710
  Serious: Yes (Hospitalization, Disabling)
  Sender: FDA-Public Use
  Company Number: None

PATIENT
  Sex: Male
  Weight: 65.7716 kg

DRUGS (3)
  1. MIRAPEX [Suspect]
     Indication: PARKINSON'S DISEASE
  2. SINEMET [Concomitant]
  3. LITHIUM [Concomitant]

REACTIONS (3)
  - AGGRESSION [None]
  - COMPULSIVE SEXUAL BEHAVIOUR [None]
  - EATING DISORDER [None]
